FAERS Safety Report 9336213 (Version 1)
Quarter: 2013Q2

REPORT INFORMATION
  Report Type: Spontaneous
  Country: US (occurrence: US)
  Receive Date: 20130607
  Receipt Date: 20130607
  Transmission Date: 20140414
  Serious: No
  Sender: FDA-Public Use
  Company Number: US-BIOGENIDEC-2013BI051119

PATIENT
  Sex: Female

DRUGS (2)
  1. TYSABRI [Suspect]
     Indication: CROHN^S DISEASE
     Route: 042
     Dates: start: 20111212
  2. BENADRYL [Concomitant]

REACTIONS (7)
  - Blood potassium decreased [Not Recovered/Not Resolved]
  - Blood iron decreased [Not Recovered/Not Resolved]
  - Poor venous access [Not Recovered/Not Resolved]
  - Weight decreased [Not Recovered/Not Resolved]
  - Formication [Unknown]
  - Dyskinesia [Unknown]
  - Muscle twitching [Unknown]
